FAERS Safety Report 15524452 (Version 1)
Quarter: 2018Q4

REPORT INFORMATION
  Report Type: Spontaneous
  Country: ES (occurrence: ES)
  Receive Date: 20181018
  Receipt Date: 20181018
  Transmission Date: 20190205
  Serious: Yes (Other)
  Sender: FDA-Public Use
  Company Number: ES-BAUSCH-BL-2018-027913

PATIENT
  Age: 36 Year
  Sex: Female

DRUGS (1)
  1. 5-AMINOSALICYLIC ACID [Suspect]
     Active Substance: MESALAMINE
     Indication: COLITIS ULCERATIVE
     Route: 065

REACTIONS (1)
  - Drug resistance [Unknown]
